FAERS Safety Report 15707309 (Version 1)
Quarter: 2018Q4

REPORT INFORMATION
  Report Type: Spontaneous
  Country: CL (occurrence: CL)
  Receive Date: 20181211
  Receipt Date: 20181211
  Transmission Date: 20190205
  Serious: Yes (Other)
  Sender: FDA-Public Use
  Company Number: CL-ROCHE-2226189

PATIENT

DRUGS (4)
  1. ACTEMRA [Suspect]
     Active Substance: TOCILIZUMAB
     Indication: STILL^S DISEASE
     Route: 065
     Dates: start: 201010
  2. ACTEMRA [Suspect]
     Active Substance: TOCILIZUMAB
     Dosage: EVERY 3 WEEKS
     Route: 065
     Dates: start: 201210, end: 201610
  3. ACTEMRA [Suspect]
     Active Substance: TOCILIZUMAB
     Dosage: EVERY 2 WEEKS
     Route: 065
     Dates: start: 201701
  4. METHOTREXATE. [Concomitant]
     Active Substance: METHOTREXATE
     Indication: STILL^S DISEASE
     Dosage: 15MG/MT2
     Route: 058
     Dates: start: 201010

REACTIONS (10)
  - Nephrolithiasis [Unknown]
  - Blood calcium abnormal [Unknown]
  - Ocular hyperaemia [Unknown]
  - Blood potassium abnormal [Unknown]
  - Arthralgia [Unknown]
  - Quality of life decreased [Unknown]
  - Anaemia [Unknown]
  - Iridocyclitis [Unknown]
  - Hypercalcaemia [Unknown]
  - Blood phosphorus abnormal [Unknown]

NARRATIVE: CASE EVENT DATE: 201210
